FAERS Safety Report 16037441 (Version 1)
Quarter: 2019Q1

REPORT INFORMATION
  Report Type: Spontaneous
  Country: US (occurrence: US)
  Receive Date: 20190305
  Receipt Date: 20190305
  Transmission Date: 20190418
  Serious: No
  Sender: FDA-Public Use
  Company Number: US-IMPAX LABORATORIES, LLC-2018-IPXL-03738

PATIENT
  Age: 64 Year
  Sex: Female
  Weight: 65 kg

DRUGS (2)
  1. PRILOSEC [Concomitant]
     Active Substance: OMEPRAZOLE MAGNESIUM
     Indication: GASTROOESOPHAGEAL REFLUX DISEASE
     Dosage: UNK
     Route: 048
  2. RYTARY [Suspect]
     Active Substance: CARBIDOPA\LEVODOPA
     Indication: PARKINSON^S DISEASE
     Dosage: 48.75/195 MG, ONE CAPSULE, THREE TIMES A DAY
     Route: 048
     Dates: start: 201806

REACTIONS (3)
  - Rash [Recovered/Resolved]
  - Skin haemorrhage [Not Recovered/Not Resolved]
  - Scab [Not Recovered/Not Resolved]

NARRATIVE: CASE EVENT DATE: 2018
